FAERS Safety Report 6491681-X (Version None)
Quarter: 2009Q4

REPORT INFORMATION
  Report Type: 
  Country: None (occurrence: None)
  Receive Date: 20091125
  Receipt Date: 20090514
  Transmission Date: 20100525
  Serious: Yes (Other)
  Sender: FDA-Public Use
  Company Number: 2009BH008148

PATIENT
  Age: 71 Year
  Sex: Male
  Weight: 77 kg

DRUGS (16)
  1. DIANEAL [Suspect]
     Indication: PERITONEAL DIALYSIS
     Dosage: 12 L ; EVERY DAY ; IP
     Route: 033
     Dates: start: 20070901, end: 20090421
  2. AMLODIPINE [Concomitant]
  3. ASCORBIC ACID [Concomitant]
  4. ASPIRIN [Concomitant]
  5. ATORVASTATIN [Concomitant]
  6. CALCITRIOL [Concomitant]
  7. CALCIUM ACETATE [Concomitant]
  8. CITALOPRAM [Concomitant]
  9. FOLIC ACID [Concomitant]
  10. GLYBURIDE [Concomitant]
  11. HYDROXYZINE [Concomitant]
  12. METOPROLOL [Concomitant]
  13. NEPHROCAPS [Concomitant]
  14. OMEPRAZOLE [Concomitant]
  15. SEVELAMER [Concomitant]
  16. VALSARTAN [Concomitant]

REACTIONS (2)
  - PERITONEAL DIALYSIS COMPLICATION [None]
  - PERITONITIS BACTERIAL [None]
